FAERS Safety Report 4865191-7 (Version None)
Quarter: 2005Q4

REPORT INFORMATION
  Report Type: 
  Country: None (occurrence: None)
  Receive Date: 20051223
  Receipt Date: 20051222
  Transmission Date: 20060501
  Serious: Yes (Hospitalization)
  Sender: FDA-Public Use
  Company Number: US-GLAXOSMITHKLINE-A0586852A

PATIENT
  Sex: Female

DRUGS (1)
  1. IMITREX [Suspect]
     Indication: MIGRAINE
     Route: 058
     Dates: start: 20050528

REACTIONS (3)
  - ANEURYSM [None]
  - BLOOD GLUCOSE INCREASED [None]
  - CONVULSION [None]
